FAERS Safety Report 20973548 (Version 2)
Quarter: 2022Q3

REPORT INFORMATION
  Report Type: Report from Study
  Country: CO (occurrence: CO)
  Receive Date: 20220617
  Receipt Date: 20220706
  Transmission Date: 20221027
  Serious: Yes (Other)
  Sender: FDA-Public Use
  Company Number: CO-ABBVIE-22K-036-4435749-00

PATIENT
  Sex: Male
  Weight: 69 kg

DRUGS (2)
  1. HUMIRA [Suspect]
     Active Substance: ADALIMUMAB
     Indication: Ankylosing spondylitis
     Route: 058
     Dates: end: 20220131
  2. HUMIRA [Suspect]
     Active Substance: ADALIMUMAB
     Indication: Ankylosing spondylitis
     Route: 058
     Dates: start: 20150108

REACTIONS (12)
  - Cervical radiculopathy [Recovering/Resolving]
  - Hypoacusis [Recovering/Resolving]
  - Immune system disorder [Recovering/Resolving]
  - Ear disorder [Recovering/Resolving]
  - Malaise [Recovering/Resolving]
  - Tympanic membrane perforation [Recovering/Resolving]
  - Tinnitus [Recovering/Resolving]
  - Mastoiditis [Recovering/Resolving]
  - Sinusitis [Recovering/Resolving]
  - Otitis media [Recovering/Resolving]
  - Pain [Recovering/Resolving]
  - Headache [Recovering/Resolving]

NARRATIVE: CASE EVENT DATE: 20200101
